FAERS Safety Report 10078507 (Version 2)
Quarter: 2014Q2

REPORT INFORMATION
  Report Type: Spontaneous
  Country: US (occurrence: None)
  Receive Date: 20140411
  Receipt Date: 20140516
  Transmission Date: 20141212
  Serious: Yes (Hospitalization)
  Sender: FDA-Public Use
  Company Number: OTH-PAT-2014004

PATIENT
  Age: 22 Month
  Sex: Male

DRUGS (1)
  1. CYSTADANE [Suspect]
     Indication: DEFICIENCY ANAEMIA
     Dosage: 3 SCOOPS ONCE DAILY
     Dates: start: 20130412

REACTIONS (5)
  - Pneumonia respiratory syncytial viral [None]
  - Venous thrombosis limb [None]
  - Pleural effusion [None]
  - Respiratory distress [None]
  - Lethargy [None]
